FAERS Safety Report 5840994-0 (Version None)
Quarter: 2008Q3

REPORT INFORMATION
  Report Type: 
  Country: None (occurrence: None)
  Receive Date: 20080811
  Receipt Date: 20080801
  Transmission Date: 20090109
  Serious: Yes (Hospitalization)
  Sender: FDA-Public Use
  Company Number: US-AMGEN-STX298982

PATIENT
  Sex: Male

DRUGS (3)
  1. ENBREL [Suspect]
     Indication: RHEUMATOID ARTHRITIS
     Route: 058
  2. UNSPECIFIED DIURETIC [Concomitant]
     Route: 065
  3. ANTIHYPERTENSIVES [Concomitant]
     Route: 065

REACTIONS (3)
  - HEPATIC CIRRHOSIS [None]
  - LUNG INFECTION [None]
  - PAIN [None]
